FAERS Safety Report 19631665 (Version 1)
Quarter: 2021Q3

REPORT INFORMATION
  Report Type: Spontaneous
  Country: US (occurrence: US)
  Receive Date: 20210728
  Receipt Date: 20210728
  Transmission Date: 20211014
  Serious: No
  Sender: FDA-Public Use
  Company Number: US-ROCHE-2649116

PATIENT
  Age: 65 Year
  Sex: Female

DRUGS (4)
  1. ZOFRAN [Concomitant]
     Active Substance: ONDANSETRON HYDROCHLORIDE
     Indication: NAUSEA
  2. TUCATINIB [Suspect]
     Active Substance: TUCATINIB
     Route: 048
  3. XELODA [Suspect]
     Active Substance: CAPECITABINE
     Indication: BREAST CANCER FEMALE
     Route: 048
  4. TUCATINIB [Suspect]
     Active Substance: TUCATINIB
     Indication: BREAST CANCER FEMALE
     Route: 048

REACTIONS (15)
  - Rhinorrhoea [Unknown]
  - Pain [Unknown]
  - Fatigue [Unknown]
  - Hypersomnia [Unknown]
  - Weight decreased [Unknown]
  - Eating disorder [Unknown]
  - Decreased appetite [Recovered/Resolved]
  - Blister [Unknown]
  - Diarrhoea [Not Recovered/Not Resolved]
  - Stomatitis [Unknown]
  - Vomiting [Unknown]
  - Blood potassium decreased [Unknown]
  - Eye pruritus [Unknown]
  - Nausea [Unknown]
  - Palmar-plantar erythrodysaesthesia syndrome [Recovered/Resolved]

NARRATIVE: CASE EVENT DATE: 20200617
